FAERS Safety Report 10562085 (Version 26)
Quarter: 2015Q3

REPORT INFORMATION
  Report Type: Report from Study
  Country: CA (occurrence: CA)
  Receive Date: 20141104
  Receipt Date: 20150914
  Transmission Date: 20151125
  Serious: Yes (Death, Hospitalization, Other)
  Sender: FDA-Public Use
  Company Number: CA-ROCHE-1471584

PATIENT
  Age: 49 Year
  Sex: Male

DRUGS (5)
  1. AVASTIN [Suspect]
     Active Substance: BEVACIZUMAB
     Indication: BRAIN NEOPLASM MALIGNANT
     Route: 042
     Dates: start: 20140509, end: 20150821
  2. PANTOPRAZOLE [Concomitant]
     Active Substance: PANTOPRAZOLE SODIUM
  3. PROCARBAZINE [Concomitant]
     Active Substance: PROCARBAZINE
     Route: 065
     Dates: end: 20150604
  4. FRAGMIN [Concomitant]
     Active Substance: DALTEPARIN SODIUM
  5. DILANTIN [Concomitant]
     Active Substance: PHENYTOIN

REACTIONS (34)
  - General physical health deterioration [Fatal]
  - Hypertension [Recovered/Resolved]
  - Diarrhoea [Recovered/Resolved]
  - Haemoglobin decreased [Unknown]
  - Stress [Unknown]
  - Memory impairment [Not Recovered/Not Resolved]
  - Blood pressure increased [Unknown]
  - Seizure [Unknown]
  - Pruritus [Recovered/Resolved]
  - Nasopharyngitis [Unknown]
  - Dysarthria [Not Recovered/Not Resolved]
  - Off label use [Unknown]
  - Hepatic enzyme increased [Unknown]
  - Lymphocyte count decreased [Unknown]
  - Laceration [Recovering/Resolving]
  - Tremor [Unknown]
  - Aphasia [Not Recovered/Not Resolved]
  - Red blood cell count decreased [Unknown]
  - Asthenia [Unknown]
  - Balance disorder [Not Recovered/Not Resolved]
  - Rectal haemorrhage [Recovered/Resolved]
  - Vomiting [Recovered/Resolved]
  - Hemiplegia [Not Recovered/Not Resolved]
  - Mobility decreased [Unknown]
  - Dysphemia [Not Recovered/Not Resolved]
  - Nausea [Recovered/Resolved]
  - Hemiparesis [Not Recovered/Not Resolved]
  - Aphasia [Not Recovered/Not Resolved]
  - Mean cell volume increased [Unknown]
  - Mean cell haemoglobin increased [Unknown]
  - Protein urine present [Recovered/Resolved]
  - Thrombosis [Unknown]
  - Infusion related reaction [Unknown]
  - Joint range of motion decreased [Not Recovered/Not Resolved]

NARRATIVE: CASE EVENT DATE: 201410
